FAERS Safety Report 9507052 (Version 1)
Quarter: 2013Q1

REPORT INFORMATION
  Report Type: Spontaneous
  Country: US (occurrence: None)
  Receive Date: 20130305
  Receipt Date: 20130305
  Transmission Date: 20140127
  Serious: Yes (Hospitalization, Other)
  Sender: FDA-Public Use
  Company Number: 163-21880-12051318

PATIENT
  Age: 67 Year
  Sex: Female
  Weight: 33.93 kg

DRUGS (1)
  1. REVLIMID (LENALIDOMIDE) (25 MILLIGRAM, CAPSULES) [Suspect]
     Indication: PLASMA CELL MYELOMA
     Dosage: 25 MG, DAILY FOR 14 DAYS, EVERY 21DAY CYCLE, PO
     Route: 048
     Dates: start: 20120423

REACTIONS (5)
  - Hip fracture [None]
  - White blood cell count decreased [None]
  - Local swelling [None]
  - Neutropenia [None]
  - Joint swelling [None]
